FAERS Safety Report 4700514-0 (Version None)
Quarter: 2005Q2

REPORT INFORMATION
  Report Type: 
  Country: None (occurrence: None)
  Receive Date: 20050624
  Receipt Date: 20050621
  Transmission Date: 20051028
  Serious: Yes (Death, Life-Threatening)
  Sender: FDA-Public Use
  Company Number: 2005-129618-NL

PATIENT
  Age: 71 Year
  Sex: Male

DRUGS (7)
  1. DANAPAROID SODIUM [Suspect]
     Indication: DISSEMINATED INTRAVASCULAR COAGULATION
     Dosage: 2500 ANTI_XA, SUBCUTANEOUS
     Route: 058
     Dates: start: 20050216, end: 20050318
  2. NICORANDIL [Concomitant]
  3. BISPROLOL FUMARATE [Concomitant]
  4. NIFEDIPINE [Concomitant]
  5. ISOSORBIDE MONONITRATE [Concomitant]
  6. LANSOPRAZOLE [Concomitant]
  7. CARBOCISTEINE [Concomitant]

REACTIONS (3)
  - ANAEMIA [None]
  - GASTRITIS HAEMORRHAGIC [None]
  - HYPERBILIRUBINAEMIA [None]
